FAERS Safety Report 10373688 (Version 1)
Quarter: 2014Q1

REPORT INFORMATION
  Report Type: Spontaneous
  Country: US (occurrence: None)
  Receive Date: 20140306
  Receipt Date: 20140306
  Transmission Date: 20141002
  Serious: Yes (Other)
  Sender: FDA-Public Use
  Company Number: 163-21880-13071827

PATIENT
  Age: 56 Year
  Sex: Female

DRUGS (16)
  1. REVLIMID (LENALIDOMIDE) (10 MILLIGRAM, CAPSULES) [Suspect]
     Indication: CHRONIC MYELOID LEUKAEMIA
     Route: 048
     Dates: start: 20130605
  2. VALCYTE (VALGANCICLOVIR HYDROCHLORIDE) (VALGANCICLOVIR HYDROCHLORIDE) [Concomitant]
  3. AMLODIPINE BESYLATE [Concomitant]
  4. BENADRYL (DIPHENHYDRAMINE HYDROCHLORIDE) [Concomitant]
  5. GABAPENTIN [Concomitant]
  6. PROCHLORPERAZINE MALEATE [Concomitant]
  7. BACTRIM DS [Concomitant]
  8. METOPROLOL TARTRATE [Concomitant]
  9. OXYCODONE HCL [Concomitant]
  10. VITAMIN B COMPLEX (B-KOMPLEX ^LECIVA^ [Concomitant]
  11. OXYCONTIN (OXYCHLORIDE HYDROCHLORIDE) [Concomitant]
  12. MULTIVITAMINS [Concomitant]
  13. PHOSPHA (NEUTRA-PHOS-K) [Concomitant]
  14. ALIVE ONCE DAILY WOMENS [Concomitant]
  15. TYLENOL (PARACETAMOL) [Concomitant]
  16. VALACYCLOVIR HCL [Concomitant]

REACTIONS (9)
  - Diarrhoea [None]
  - Vomiting [None]
  - Urine odour abnormal [None]
  - Nausea [None]
  - Abdominal discomfort [None]
  - Arthralgia [None]
  - Back pain [None]
  - Malaise [None]
  - Blood potassium decreased [None]
